FAERS Safety Report 5753467-0 (Version None)
Quarter: 2008Q2

REPORT INFORMATION
  Report Type: 
  Country: None (occurrence: None)
  Receive Date: 20080530
  Receipt Date: 20080527
  Transmission Date: 20081010
  Serious: Yes (Life-Threatening, Hospitalization)
  Sender: FDA-Public Use
  Company Number: FR-WYE-G01593108

PATIENT

DRUGS (6)
  1. TAZOCILLINE [Suspect]
     Indication: PROTEUS INFECTION
     Route: 042
     Dates: start: 20080313, end: 20080408
  2. TAZOCILLINE [Suspect]
     Indication: SUPERINFECTION BACTERIAL
  3. TAZOCILLINE [Suspect]
     Indication: ENTEROCOCCAL INFECTION
  4. LOVENOX [Suspect]
     Route: 042
     Dates: start: 20080301, end: 20080407
  5. LOVENOX [Suspect]
     Route: 042
     Dates: start: 20080408, end: 20080409
  6. MOPRAL [Suspect]
     Indication: PROPHYLAXIS
     Route: 048
     Dates: end: 20080401

REACTIONS (2)
  - AGRANULOCYTOSIS [None]
  - MYELOID MATURATION ARREST [None]
